FAERS Safety Report 26137381 (Version 1)
Quarter: 2025Q4

REPORT INFORMATION
  Report Type: Spontaneous
  Country: JP (occurrence: JP)
  Receive Date: 20251209
  Receipt Date: 20251209
  Transmission Date: 20260118
  Serious: Yes (Hospitalization, Other)
  Sender: EISAI
  Company Number: JP-Eisai-202211673_LEN-RCC_P_1

PATIENT
  Age: 69 Year
  Sex: Female

DRUGS (2)
  1. LENVIMA [Suspect]
     Active Substance: LENVATINIB
     Indication: Renal cell carcinoma
     Route: 048
     Dates: start: 20221104
  2. KEYTRUDA [Suspect]
     Active Substance: PEMBROLIZUMAB
     Indication: Renal cell carcinoma
     Route: 041
     Dates: start: 20221104

REACTIONS (10)
  - Adrenal insufficiency [Unknown]
  - Drug eruption [Recovering/Resolving]
  - Malaise [Unknown]
  - Decreased appetite [Recovered/Resolved]
  - Hypothyroidism [Unknown]
  - Hypertension [Recovering/Resolving]
  - Diarrhoea [Unknown]
  - Nausea [Unknown]
  - Vomiting [Unknown]
  - Eczema [Unknown]

NARRATIVE: CASE EVENT DATE: 20221101
